FAERS Safety Report 8845864 (Version 1)
Quarter: 2012Q4

REPORT INFORMATION
  Report Type: 
  Country: US (occurrence: US)
  Receive Date: 20121017
  Receipt Date: 20121017
  Transmission Date: 20130627
  Serious: Yes (Hospitalization)
  Sender: FDA-Public Use
  Company Number: US-ROCHE-1122190

PATIENT
  Age: 16 Year
  Sex: Male

DRUGS (1)
  1. NUTROPIN [Suspect]
     Indication: DWARFISM
     Route: 050

REACTIONS (1)
  - Convulsion [Unknown]
